FAERS Safety Report 20187170 (Version 6)
Quarter: 2022Q3

REPORT INFORMATION
  Report Type: Spontaneous
  Country: JP (occurrence: JP)
  Receive Date: 20211215
  Receipt Date: 20220712
  Transmission Date: 20221027
  Serious: Yes (Other)
  Sender: FDA-Public Use
  Company Number: JP-002147023-NVSJ2021JP020313

PATIENT
  Age: 86 Year
  Sex: Female

DRUGS (13)
  1. LUCENTIS [Suspect]
     Active Substance: RANIBIZUMAB
     Indication: Age-related macular degeneration
     Route: 050
     Dates: start: 20101021, end: 20101021
  2. LUCENTIS [Suspect]
     Active Substance: RANIBIZUMAB
     Route: 050
     Dates: start: 20101125, end: 20101125
  3. LUCENTIS [Suspect]
     Active Substance: RANIBIZUMAB
     Route: 050
     Dates: start: 20101227, end: 20101227
  4. LUCENTIS [Suspect]
     Active Substance: RANIBIZUMAB
     Route: 050
     Dates: start: 20120809, end: 20120809
  5. LUCENTIS [Suspect]
     Active Substance: RANIBIZUMAB
     Route: 050
     Dates: start: 20120910, end: 20120910
  6. LUCENTIS [Suspect]
     Active Substance: RANIBIZUMAB
     Route: 050
     Dates: start: 20130110, end: 20130110
  7. LUCENTIS [Suspect]
     Active Substance: RANIBIZUMAB
     Route: 050
     Dates: start: 20130408, end: 20130408
  8. LUCENTIS [Suspect]
     Active Substance: RANIBIZUMAB
     Route: 050
     Dates: start: 20130819, end: 20130819
  9. LUCENTIS [Suspect]
     Active Substance: RANIBIZUMAB
     Route: 050
     Dates: start: 20131003, end: 20131003
  10. LUCENTIS [Suspect]
     Active Substance: RANIBIZUMAB
     Dosage: 0.05 ML, QD
     Route: 050
     Dates: start: 20210205, end: 20210205
  11. METHYLCOBALAMIN [Concomitant]
     Active Substance: METHYLCOBALAMIN
     Indication: Asthenopia
     Dosage: 500 UG, TID
     Route: 048
     Dates: start: 20200904
  12. ADONA [Concomitant]
     Indication: Age-related macular degeneration
     Dosage: 30 MG, TID
     Route: 048
     Dates: start: 20200904
  13. LEVOFLOXACIN [Concomitant]
     Active Substance: LEVOFLOXACIN
     Indication: Infection prophylaxis
     Dosage: 1 DRP, ADMINISTERED AS INFECTION PROPHYLAXIS BEFORE AND AFTER VITREOUS INJECTION
     Route: 047
     Dates: start: 20200904

REACTIONS (4)
  - Age-related macular degeneration [Recovering/Resolving]
  - Disease recurrence [Recovering/Resolving]
  - Cataract [Recovered/Resolved]
  - Drug ineffective [Unknown]
